FAERS Safety Report 25017957 (Version 2)
Quarter: 2025Q2

REPORT INFORMATION
  Report Type: Spontaneous
  Country: JP (occurrence: JP)
  Receive Date: 20250227
  Receipt Date: 20250604
  Transmission Date: 20250716
  Serious: Yes (Death, Other)
  Sender: RECORDATI
  Company Number: JP-RECORDATI RARE DISEASE INC.-2025001199

PATIENT
  Age: 60 Year
  Sex: Male
  Weight: 89.8 kg

DRUGS (11)
  1. ISTURISA [Suspect]
     Active Substance: OSILODROSTAT PHOSPHATE
     Indication: Phaeochromocytoma
     Dosage: 4 MILLIGRAM, QD
     Dates: start: 20230422, end: 20230508
  2. ISTURISA [Suspect]
     Active Substance: OSILODROSTAT PHOSPHATE
     Indication: Ectopic ACTH syndrome
  3. ISTURISA [Suspect]
     Active Substance: OSILODROSTAT PHOSPHATE
     Indication: Hyperadrenocorticism
  4. DOXAZOSIN [Concomitant]
     Active Substance: DOXAZOSIN MESYLATE
     Indication: Blood catecholamines increased
     Route: 048
  5. DOXAZOSIN [Concomitant]
     Active Substance: DOXAZOSIN MESYLATE
     Route: 048
  6. DOXAZOSIN [Concomitant]
     Active Substance: DOXAZOSIN MESYLATE
     Dosage: 16 MILLIGRAM, QD
     Route: 048
     Dates: start: 20230406, end: 20230504
  7. PHENTOLAMINE [Concomitant]
     Active Substance: PHENTOLAMINE
     Indication: Blood catecholamines increased
     Dosage: 216 MILLIGRAM, QD (9 MG/QH)
     Route: 042
     Dates: start: 20230406, end: 20230517
  8. PHENTOLAMINE [Concomitant]
     Active Substance: PHENTOLAMINE
  9. METHYLPREDNISOLONE SODIUM SUCCINATE [Concomitant]
     Active Substance: METHYLPREDNISOLONE SODIUM SUCCINATE
     Indication: Traumatic lung injury
     Dosage: 40 MILLIGRAM, QD
     Route: 042
     Dates: start: 20230406, end: 20230417
  10. METHYLPREDNISOLONE SODIUM SUCCINATE [Concomitant]
     Active Substance: METHYLPREDNISOLONE SODIUM SUCCINATE
     Route: 042
  11. SULFAMETHOXAZOLE\TRIMETHOPRIM [Concomitant]
     Active Substance: SULFAMETHOXAZOLE\TRIMETHOPRIM
     Indication: Phaeochromocytoma

REACTIONS (3)
  - Cardio-respiratory arrest [Fatal]
  - Brain oedema [Unknown]
  - Off label use [Recovered/Resolved]

NARRATIVE: CASE EVENT DATE: 20230422
